FAERS Safety Report 9000627 (Version 1)
Quarter: 2013Q1

REPORT INFORMATION
  Report Type: Spontaneous
  Country: DK (occurrence: DK)
  Receive Date: 20130107
  Receipt Date: 20130107
  Transmission Date: 20140127
  Serious: Yes (Other)
  Sender: FDA-Public Use
  Company Number: DK-BAYER-2013-001005

PATIENT
  Age: 37 Year
  Sex: Female

DRUGS (3)
  1. YASMIN [Suspect]
     Indication: MENSTRUATION IRREGULAR
  2. YASMIN [Suspect]
     Indication: POLYCYSTIC OVARIES
  3. YASMIN [Suspect]
     Indication: CONTRACEPTION

REACTIONS (5)
  - Brain stem thrombosis [Unknown]
  - Dizziness [Unknown]
  - Hypoaesthesia oral [Unknown]
  - Sensation of foreign body [Unknown]
  - Hypoaesthesia [Unknown]
